FAERS Safety Report 20527653 (Version 1)
Quarter: 2022Q1

REPORT INFORMATION
  Report Type: Spontaneous
  Country: US (occurrence: None)
  Receive Date: 20220228
  Receipt Date: 20220228
  Transmission Date: 20220423
  Serious: No
  Sender: FDA-Public Use
  Company Number: None

PATIENT
  Age: 78 Year
  Sex: Female
  Weight: 60.75 kg

DRUGS (1)
  1. BUPROPION [Suspect]
     Active Substance: BUPROPION
     Indication: Depression
     Dosage: OTHER QUANTITY : 90 TABLET(S);?FREQUENCY : DAILY;?
     Route: 048
     Dates: start: 20220218

REACTIONS (11)
  - Amnesia [None]
  - Nervousness [None]
  - Tremor [None]
  - Hallucination [None]
  - Vision blurred [None]
  - Dysphonia [None]
  - Disturbance in attention [None]
  - Ear discomfort [None]
  - Decreased appetite [None]
  - Cognitive disorder [None]
  - Insomnia [None]

NARRATIVE: CASE EVENT DATE: 20220226
